FAERS Safety Report 9282355 (Version 2)
Quarter: 2013Q2

REPORT INFORMATION
  Report Type: Spontaneous
  Country: US (occurrence: US)
  Receive Date: 20130510
  Receipt Date: 20130510
  Transmission Date: 20140414
  Serious: No
  Sender: FDA-Public Use
  Company Number: US-MYLANLABS-2013S1005613

PATIENT
  Age: 51 Year
  Sex: Female

DRUGS (2)
  1. MODAFINIL TABLETS USP [Suspect]
     Indication: SLEEP APNOEA SYNDROME
     Dosage: 100MG PO QAM?100MG PO Q AFTERNOON
     Route: 048
     Dates: start: 201301, end: 20130313
  2. MODAFINIL TABLETS USP [Suspect]
     Indication: NARCOLEPSY
     Dosage: 100MG PO QAM?100MG PO Q AFTERNOON
     Route: 048
     Dates: start: 201301, end: 20130313

REACTIONS (2)
  - Drug ineffective [Unknown]
  - Narcolepsy [Unknown]
